FAERS Safety Report 4766065-2 (Version None)
Quarter: 2005Q3

REPORT INFORMATION
  Report Type: 
  Country: None (occurrence: None)
  Receive Date: 20050912
  Receipt Date: 20050901
  Transmission Date: 20060218
  Serious: Yes (Other)
  Sender: FDA-Public Use
  Company Number: PHNU2005DE03041

PATIENT
  Sex: Female

DRUGS (2)
  1. DIOVAN [Suspect]
     Indication: HYPERTENSION
     Dosage: 80 MG, QOD
     Route: 048
     Dates: start: 20010101, end: 20050801
  2. DIOVAN HCT [Suspect]
     Indication: HYPERTENSION
     Dosage: 80 MG, QOD
     Route: 048
     Dates: start: 20010101, end: 20050801

REACTIONS (7)
  - ASTHENIA [None]
  - C-REACTIVE PROTEIN INCREASED [None]
  - GENERAL PHYSICAL HEALTH DETERIORATION [None]
  - MUSCULAR WEAKNESS [None]
  - MYALGIA [None]
  - PYREXIA [None]
  - RED BLOOD CELL SEDIMENTATION RATE INCREASED [None]
